FAERS Safety Report 14212035 (Version 1)
Quarter: 2017Q4

REPORT INFORMATION
  Report Type: Spontaneous
  Country: CN (occurrence: CN)
  Receive Date: 20171121
  Receipt Date: 20171121
  Transmission Date: 20180321
  Serious: Yes (Other)
  Sender: FDA-Public Use
  Company Number: CN-CORCEPT THERAPEUTICS INC.-CN-2017CRT000933

PATIENT

DRUGS (2)
  1. MIFEPRISTONE [Suspect]
     Active Substance: MIFEPRISTONE
     Indication: PLACENTAL DISORDER
     Dosage: 50 MG, BID
     Route: 048
  2. METHOTREXATE. [Suspect]
     Active Substance: METHOTREXATE
     Indication: PLACENTAL DISORDER
     Dosage: 1 MG/KG, 3 TIMES EVERY OTHER DAY
     Route: 030

REACTIONS (4)
  - Transaminases abnormal [Recovered/Resolved]
  - Postpartum haemorrhage [Recovered/Resolved]
  - Pyrexia [Recovered/Resolved]
  - Leukopenia [Recovered/Resolved]
